FAERS Safety Report 25092664 (Version 1)
Quarter: 2025Q1

REPORT INFORMATION
  Report Type: Spontaneous
  Country: SI (occurrence: SI)
  Receive Date: 20250319
  Receipt Date: 20250319
  Transmission Date: 20250409
  Serious: Yes (Hospitalization)
  Sender: ABBVIE
  Company Number: None

PATIENT
  Age: 75 Year
  Sex: Male
  Weight: 90 kg

DRUGS (1)
  1. SKYRIZI [Suspect]
     Active Substance: RISANKIZUMAB-RZAA
     Indication: Psoriasis
     Dosage: FORM STRENGTH: 150 MG
     Route: 058
     Dates: start: 20241112, end: 20241212

REACTIONS (1)
  - Optic ischaemic neuropathy [Not Recovered/Not Resolved]

NARRATIVE: CASE EVENT DATE: 20241225
